FAERS Safety Report 7967565-4 (Version None)
Quarter: 2011Q4

REPORT INFORMATION
  Report Type: 
  Country: None (occurrence: None)
  Receive Date: 20111209
  Receipt Date: 20111201
  Transmission Date: 20120403
  Serious: Yes (Hospitalization, Other)
  Sender: FDA-Public Use
  Company Number: FR-UCBSA-046088

PATIENT
  Age: 47 Year
  Sex: Female

DRUGS (6)
  1. AMITRIPTYLINE HCL [Concomitant]
     Dosage: UNKNWON DOSAGE
  2. TRAMADOL HCL [Concomitant]
     Dosage: UNKNOWN DOSAGE
  3. CLONAZEPAM [Concomitant]
     Dosage: UNKNOWN DOSAGE
  4. CORTICOIDS [Concomitant]
     Indication: PSORIASIS
     Dosage: UNKNOWN DOSAGE
  5. NEXIUM [Concomitant]
     Dosage: UNKNOWN DOSAGE
  6. CIMZIA [Suspect]
     Indication: PSORIASIS
     Dosage: 2 INJECTIONS EVERY 15 DAYS
     Route: 058
     Dates: start: 20101015, end: 20110315

REACTIONS (7)
  - SINUSITIS [None]
  - NEPHROLITHIASIS [None]
  - PAROSMIA [None]
  - OVERDOSE [None]
  - BLINDNESS [None]
  - BONE DECALCIFICATION [None]
  - TOOTH DISORDER [None]
